FAERS Safety Report 17705610 (Version 1)
Quarter: 2020Q2

REPORT INFORMATION
  Report Type: Report from Study
  Country: US (occurrence: US)
  Receive Date: 20200424
  Receipt Date: 20200424
  Transmission Date: 20200714
  Serious: Yes (Disabling)
  Sender: FDA-Public Use
  Company Number: US-SA-2015SA060918

PATIENT
  Age: 71 Year
  Sex: Female

DRUGS (2)
  1. ALEMTUZUMAB [Suspect]
     Active Substance: ALEMTUZUMAB
     Dosage: 12 MG,QD
     Route: 041
     Dates: start: 20160613, end: 20160615
  2. ALEMTUZUMAB [Suspect]
     Active Substance: ALEMTUZUMAB
     Indication: MULTIPLE SCLEROSIS
     Dosage: 12 MG,QD
     Route: 041
     Dates: start: 20150420, end: 20150424

REACTIONS (18)
  - Arthropathy [Unknown]
  - Eye infection [Recovering/Resolving]
  - Fatigue [Unknown]
  - Joint swelling [Unknown]
  - Feeling abnormal [Unknown]
  - Peripheral swelling [Unknown]
  - Hypersomnia [Unknown]
  - Eye discharge [Recovering/Resolving]
  - Muscular weakness [Not Recovered/Not Resolved]
  - Rash erythematous [Unknown]
  - Increased tendency to bruise [Unknown]
  - Bladder disorder [Unknown]
  - Eye pruritus [Recovering/Resolving]
  - Dysstasia [Unknown]
  - Rash pruritic [Recovered/Resolved]
  - Urinary tract infection [Unknown]
  - Tooth fracture [Not Recovered/Not Resolved]
  - Gait disturbance [Unknown]

NARRATIVE: CASE EVENT DATE: 2015
